FAERS Safety Report 4489515-8 (Version None)
Quarter: 2004Q4

REPORT INFORMATION
  Report Type: 
  Country: None (occurrence: None)
  Receive Date: 20041028
  Receipt Date: 20041021
  Transmission Date: 20050328
  Serious: Yes (Hospitalization)
  Sender: FDA-Public Use
  Company Number: GBWYE062523SEP04

PATIENT
  Age: 44 Year
  Sex: Female

DRUGS (11)
  1. RAPAMUNE [Suspect]
     Indication: RENAL TRANSPLANT
  2. CLARITHROMYCIN [Suspect]
     Indication: LOWER RESPIRATORY TRACT INFECTION
     Dosage: 250 MG 2X PER 1 DAY
  3. CLARITHROMYCIN [Suspect]
     Indication: URINARY TRACT INFECTION
     Dosage: 250 MG 2X PER 1 DAY
  4. ATENOLOL [Concomitant]
  5. PREDNISOLONE [Concomitant]
  6. DOXAZOSIN (DOXAZOSIN) [Concomitant]
  7. ATORVASTATIN (ATORVASTATIN) [Concomitant]
  8. CIPROFLOXACIN [Concomitant]
  9. ARANESP [Concomitant]
  10. SODIUM BICARBONATE IN PLASTIC CONTAINER [Concomitant]
  11. METRONIDAZOLE [Concomitant]

REACTIONS (7)
  - DIARRHOEA [None]
  - DRUG INTERACTION [None]
  - DRUG TOXICITY [None]
  - IMMUNOSUPPRESSANT DRUG LEVEL INCREASED [None]
  - LOWER RESPIRATORY TRACT INFECTION [None]
  - PYREXIA [None]
  - URINARY TRACT INFECTION [None]
